FAERS Safety Report 10095681 (Version 1)
Quarter: 2014Q2

REPORT INFORMATION
  Report Type: Spontaneous
  Country: CN (occurrence: CN)
  Receive Date: 20140422
  Receipt Date: 20140422
  Transmission Date: 20141212
  Serious: Yes (Other)
  Sender: FDA-Public Use
  Company Number: CN-PFIZER INC-2014105769

PATIENT
  Age: 81 Year
  Sex: Male
  Weight: 60 kg

DRUGS (2)
  1. DIFLUCAN [Suspect]
     Indication: PNEUMONIA
     Dosage: 0.4 G, 1X/DAY
     Route: 041
     Dates: start: 20131117, end: 20131118
  2. SHENMAI INJECTION [Concomitant]
     Dosage: 50 ML, 1X/DAY
     Route: 041
     Dates: start: 20131116

REACTIONS (4)
  - Hyperpyrexia [Recovering/Resolving]
  - Tremor [Recovering/Resolving]
  - Chest discomfort [Recovering/Resolving]
  - Tachypnoea [Recovering/Resolving]
